FAERS Safety Report 16997757 (Version 1)
Quarter: 2019Q4

REPORT INFORMATION
  Report Type: Spontaneous
  Country: US (occurrence: US)
  Receive Date: 20190924
  Receipt Date: 20190924
  Transmission Date: 20200122
  Serious: Yes (Other)
  Sender: FDA-Public Use
  Company Number: None

PATIENT
  Age: 77 Year
  Sex: Female

DRUGS (14)
  1. OPSUMIT [Suspect]
     Active Substance: MACITENTAN
     Indication: PULMONARY HYPERTENSION
     Route: 048
     Dates: start: 201907, end: 201908
  2. CLONIDINE. [Concomitant]
     Active Substance: CLONIDINE
  3. TRAZODONE [Concomitant]
     Active Substance: TRAZODONE HYDROCHLORIDE
  4. COMBIVENT RESPIMAT [Suspect]
     Active Substance: ALBUTEROL SULFATE\IPRATROPIUM BROMIDE
  5. NICODERM CQ [Concomitant]
     Active Substance: NICOTINE
  6. PRED FORTE OPHT SUSP [Concomitant]
  7. DILTIAZEM. [Concomitant]
     Active Substance: DILTIAZEM
  8. POTASSIUM CHLORIDE. [Concomitant]
     Active Substance: POTASSIUM CHLORIDE
  9. NICORETTE [Concomitant]
     Active Substance: NICOTINE
  10. FUROSEMIDE. [Concomitant]
     Active Substance: FUROSEMIDE
  11. SILDENAFIL. [Concomitant]
     Active Substance: SILDENAFIL
  12. WARFARIN [Concomitant]
     Active Substance: WARFARIN
  13. GABAPENTIN. [Concomitant]
     Active Substance: GABAPENTIN
  14. PAROXETINE. [Concomitant]
     Active Substance: PAROXETINE

REACTIONS (2)
  - Nasal congestion [None]
  - Drug intolerance [None]

NARRATIVE: CASE EVENT DATE: 20190815
